FAERS Safety Report 13644414 (Version 1)
Quarter: 2017Q2

REPORT INFORMATION
  Report Type: Spontaneous
  Country: US (occurrence: US)
  Receive Date: 20170612
  Receipt Date: 20170612
  Transmission Date: 20170830
  Serious: No
  Sender: FDA-Public Use
  Company Number: US-ROCHE-1291589

PATIENT
  Sex: Female

DRUGS (1)
  1. XELODA [Suspect]
     Active Substance: CAPECITABINE
     Indication: BREAST CANCER
     Dosage: (2) BID FOR 14 DAYS AND OFF 7 DAYS
     Route: 065

REACTIONS (2)
  - Vomiting [Unknown]
  - Nephrolithiasis [Unknown]
